FAERS Safety Report 7351052-0 (Version None)
Quarter: 2011Q1

REPORT INFORMATION
  Report Type: 
  Country: None (occurrence: None)
  Receive Date: 20110304
  Receipt Date: 20110223
  Transmission Date: 20110831
  Serious: Yes (Death, Hospitalization)
  Sender: FDA-Public Use
  Company Number: UTC-005345

PATIENT
  Age: 19 Year
  Sex: Female
  Weight: 43.18 kg

DRUGS (2)
  1. REMODULIN [Suspect]
     Dosage: 92.16 UG/KR (0.064 UG/KG, 1 IN 1 MIN), INTRAVENOUS
     Route: 042
     Dates: start: 20100115
  2. REVATIO [Concomitant]

REACTIONS (1)
  - PNEUMONIA [None]
